FAERS Safety Report 7674787-9 (Version None)
Quarter: 2011Q3

REPORT INFORMATION
  Report Type: 
  Country: None (occurrence: None)
  Receive Date: 20110810
  Receipt Date: 20110805
  Transmission Date: 20111222
  Serious: Yes (Hospitalization)
  Sender: FDA-Public Use
  Company Number: JP-GLAXOSMITHKLINE-B0737362A

PATIENT
  Sex: Male

DRUGS (2)
  1. TAMSULOSIN HCL [Concomitant]
     Route: 048
  2. DUTASTERIDE [Suspect]
     Indication: BENIGN PROSTATIC HYPERPLASIA
     Dosage: .5MG PER DAY
     Route: 048
     Dates: start: 20110727, end: 20110803

REACTIONS (1)
  - DEEP VEIN THROMBOSIS [None]
